FAERS Safety Report 13949568 (Version 3)
Quarter: 2018Q3

REPORT INFORMATION
  Report Type: Spontaneous
  Country: DE (occurrence: DE)
  Receive Date: 20170908
  Receipt Date: 20180821
  Transmission Date: 20181010
  Serious: Yes (Death, Life-Threatening, Hospitalization, Other)
  Sender: FDA-Public Use
  Company Number: DE-TEVA-804998GER

PATIENT
  Sex: Female

DRUGS (6)
  1. IBUPROFEN. [Interacting]
     Active Substance: IBUPROFEN
     Dosage: 3 GRAM DAILY; DOSAGE FORM = 600MG
     Route: 065
  2. QUETIAPINE PROLONGED?RELEASE TABLET [Interacting]
     Active Substance: QUETIAPINE
     Dosage: 8.7 GRAM DAILY; DOSAGE FORM = 300 MG
     Route: 065
  3. IBUPROFEN. [Interacting]
     Active Substance: IBUPROFEN
     Dosage: 2 GRAM DAILY; DOSAGE FORM = 400 MG
     Route: 065
  4. SINUPRET FORTE [Interacting]
     Active Substance: HERBALS
     Indication: SUICIDE ATTEMPT
     Route: 065
  5. MIRTAZAPINE 30MG [Suspect]
     Active Substance: MIRTAZAPINE
     Indication: SUICIDE ATTEMPT
     Dosage: 7.5 GRAM DAILY; DOSAGE FORM = 30 MG, DOSE PER KG BODY WEIGHT: 13 MG/KG
     Route: 065
  6. QUETIAPINE PROLONGED?RELEASE TABLET [Interacting]
     Active Substance: QUETIAPINE
     Dosage: 5.8 GRAM DAILY; DOSAGE FORM = 200 MG
     Route: 065

REACTIONS (11)
  - Loss of consciousness [Unknown]
  - Respiratory failure [Fatal]
  - Seizure [Unknown]
  - Acute respiratory distress syndrome [Unknown]
  - Completed suicide [Unknown]
  - Drug interaction [Unknown]
  - Hypoxia [Unknown]
  - Hypotension [Unknown]
  - Toxicity to various agents [Unknown]
  - Intentional overdose [Unknown]
  - Off label use [Unknown]
